FAERS Safety Report 18432515 (Version 2)
Quarter: 2020Q4

REPORT INFORMATION
  Report Type: Spontaneous
  Country: US (occurrence: US)
  Receive Date: 20201027
  Receipt Date: 20201109
  Transmission Date: 20210114
  Serious: No
  Sender: FDA-Public Use
  Company Number: US-PFIZER INC-2020413896

PATIENT
  Age: 79 Year
  Sex: Female

DRUGS (2)
  1. IBRANCE [Suspect]
     Active Substance: PALBOCICLIB
     Dosage: 100 UNK
  2. IBRANCE [Suspect]
     Active Substance: PALBOCICLIB
     Indication: HEPATOCELLULAR CARCINOMA
     Dosage: 75 MG

REACTIONS (5)
  - Off label use [Unknown]
  - Asthenia [Unknown]
  - Product use in unapproved indication [Unknown]
  - Illness [Unknown]
  - Renal disorder [Unknown]
